FAERS Safety Report 11214313 (Version 1)
Quarter: 2015Q2

REPORT INFORMATION
  Report Type: Spontaneous
  Country: US (occurrence: US)
  Receive Date: 20150624
  Receipt Date: 20150624
  Transmission Date: 20150821
  Serious: No
  Sender: FDA-Public Use
  Company Number: US-AMGEN-USASP2015061138

PATIENT
  Age: 48 Year
  Sex: Male

DRUGS (1)
  1. ENBREL [Suspect]
     Active Substance: ETANERCEPT
     Indication: PSORIASIS
     Dosage: 50 MG, 2 TIMES/WK,72 TO 96 HOURS APART
     Route: 058
     Dates: start: 20150514

REACTIONS (4)
  - Condition aggravated [Unknown]
  - Erythema [Unknown]
  - Skin disorder [Unknown]
  - Skin swelling [Unknown]

NARRATIVE: CASE EVENT DATE: 2015
